FAERS Safety Report 22133075 (Version 2)
Quarter: 2023Q2

REPORT INFORMATION
  Report Type: Report from Study
  Country: US (occurrence: US)
  Receive Date: 20230324
  Receipt Date: 20230601
  Transmission Date: 20230722
  Serious: No
  Sender: FDA-Public Use
  Company Number: US-ACADIA PHARMACEUTICALS INC.-ACA-2023-PIM-000861

PATIENT
  Age: 79 Year
  Sex: Female

DRUGS (19)
  1. NUPLAZID [Suspect]
     Active Substance: PIMAVANSERIN TARTRATE
     Indication: Parkinson^s disease psychosis
     Dosage: 34 MILLIGRAM, QD
     Route: 048
     Dates: start: 20221001
  2. ALENDRONATE [Concomitant]
     Active Substance: ALENDRONATE SODIUM
  3. ASPIRIN [Concomitant]
     Active Substance: ASPIRIN
  4. AZELASTINE [Concomitant]
     Active Substance: AZELASTINE
     Dosage: SPRAY
  5. CARBIDOPA LEVODOPA [Concomitant]
     Active Substance: CARBIDOPA\LEVODOPA
  6. CLOPIDOGREL [Concomitant]
     Active Substance: CLOPIDOGREL BISULFATE
  7. DONEPEZIL [Concomitant]
     Active Substance: DONEPEZIL
  8. DULOXETINE [Concomitant]
     Active Substance: DULOXETINE
  9. EZETIMIBE [Concomitant]
     Active Substance: EZETIMIBE
  10. LEVETIRACETAM [Concomitant]
     Active Substance: LEVETIRACETAM
  11. LEVOTHYROXINE [Concomitant]
     Active Substance: LEVOTHYROXINE
  12. METHOCARBAMOL [Concomitant]
     Active Substance: METHOCARBAMOL
  13. METOPROLOL TARTRATE [Concomitant]
     Active Substance: METOPROLOL TARTRATE
  14. ROSUVASTATIN [Concomitant]
     Active Substance: ROSUVASTATIN
  15. VITAMIN D NOS [Concomitant]
     Active Substance: VITAMIN D NOS
  16. CALCIUM [Concomitant]
     Active Substance: CALCIUM
  17. MAGNESIUM [Concomitant]
     Active Substance: MAGNESIUM
  18. CYANOCOBALAMIN [Concomitant]
     Active Substance: CYANOCOBALAMIN
  19. VITAMIN B2 [Concomitant]
     Active Substance: RIBOFLAVIN

REACTIONS (3)
  - Disturbance in attention [Unknown]
  - Sticky skin [Unknown]
  - Hallucination [Not Recovered/Not Resolved]

NARRATIVE: CASE EVENT DATE: 20230310
